FAERS Safety Report 9050979 (Version 1)
Quarter: 2013Q1

REPORT INFORMATION
  Report Type: Spontaneous
  Country: US (occurrence: US)
  Receive Date: 20130205
  Receipt Date: 20130205
  Transmission Date: 20140127
  Serious: No
  Sender: FDA-Public Use
  Company Number: US-ROXANE LABORATORIES, INC.-2013-RO-00209RO

PATIENT
  Age: 42 None
  Sex: Female

DRUGS (2)
  1. OXYMORPHONE HYDROCHLORIDE [Suspect]
     Indication: PAIN
     Dosage: 20 MG
     Route: 048
     Dates: start: 20130128
  2. OXYCONTIN [Concomitant]
     Dosage: 160 MG
     Route: 048

REACTIONS (3)
  - Headache [Not Recovered/Not Resolved]
  - Retching [Not Recovered/Not Resolved]
  - Vomiting [Not Recovered/Not Resolved]
